FAERS Safety Report 5532664-3 (Version None)
Quarter: 2007Q4

REPORT INFORMATION
  Report Type: 
  Country: None (occurrence: None)
  Receive Date: 20071203
  Receipt Date: 20071128
  Transmission Date: 20080405
  Serious: Yes (Hospitalization)
  Sender: FDA-Public Use
  Company Number: US-MERCK-0711USA05827

PATIENT
  Age: 44 Year
  Sex: Male

DRUGS (5)
  1. DECADRON [Suspect]
     Indication: BRAIN NEOPLASM
     Route: 048
     Dates: start: 20061201
  2. TEMODAR [Concomitant]
     Route: 065
  3. [THERAPY UNSPECIFIED] [Concomitant]
     Route: 065
  4. BACTRIM [Concomitant]
     Route: 065
  5. LOPRESSOR [Concomitant]
     Route: 065

REACTIONS (5)
  - BONE DENSITY DECREASED [None]
  - HALLUCINATION [None]
  - LUNG INFECTION [None]
  - MUSCLE TWITCHING [None]
  - MUSCULAR WEAKNESS [None]
